FAERS Safety Report 4601020-4 (Version None)
Quarter: 2005Q1

REPORT INFORMATION
  Report Type: 
  Country: None (occurrence: None)
  Receive Date: 20050304
  Receipt Date: 20050304
  Transmission Date: 20050727
  Serious: Yes (Other)
  Sender: FDA-Public Use
  Company Number: None

PATIENT
  Sex: Female

DRUGS (3)
  1. OMEPRAZOLE [Suspect]
     Indication: GASTROOESOPHAGEAL REFLUX DISEASE
     Dosage: ONE CAPSULE ONCE DAILY
     Route: 048
     Dates: start: 20050104, end: 20050126
  2. TRIAMTERENE AND HYDROCHLOROTHIAZIDE [Concomitant]
  3. PIROXICAM [Concomitant]

REACTIONS (3)
  - CONDITION AGGRAVATED [None]
  - GASTROOESOPHAGEAL REFLUX DISEASE [None]
  - PHARMACEUTICAL PRODUCT COMPLAINT [None]
